FAERS Safety Report 4290619-3 (Version None)
Quarter: 2004Q1

REPORT INFORMATION
  Report Type: 
  Country: None (occurrence: None)
  Receive Date: 20040211
  Receipt Date: 20040203
  Transmission Date: 20041129
  Serious: Yes (Hospitalization)
  Sender: FDA-Public Use
  Company Number: JP-BRISTOL-MYERS SQUIBB COMPANY-12495198

PATIENT
  Age: 68 Year
  Sex: Female

DRUGS (2)
  1. MAXIPIME [Suspect]
     Indication: PYREXIA
     Route: 042
     Dates: start: 20040123, end: 20040127
  2. LOXOPROFEN SODIUM [Concomitant]

REACTIONS (5)
  - BLOOD ALKALINE PHOSPHATASE INCREASED [None]
  - BLOOD BILIRUBIN INCREASED [None]
  - GAMMA-GLUTAMYLTRANSFERASE INCREASED [None]
  - PANCYTOPENIA [None]
  - PYREXIA [None]
